FAERS Safety Report 9992267 (Version 2)
Quarter: 2014Q1

REPORT INFORMATION
  Report Type: Spontaneous
  Country: US (occurrence: US)
  Receive Date: 20140310
  Receipt Date: 20140310
  Transmission Date: 20141002
  Serious: Yes (Other)
  Sender: FDA-Public Use
  Company Number: US-ASTELLAS-2013US012825

PATIENT
  Age: 87 Year
  Sex: Male

DRUGS (2)
  1. XTANDI [Suspect]
     Indication: PROSTATE CANCER
     Dosage: 160 MG, DAILY
     Route: 048
     Dates: start: 20131107, end: 20131205
  2. XTANDI [Suspect]
     Dosage: UNK
     Route: 048
     Dates: start: 201312

REACTIONS (4)
  - Malignant neoplasm progression [Not Recovered/Not Resolved]
  - Activities of daily living impaired [Not Recovered/Not Resolved]
  - Asthenia [Not Recovered/Not Resolved]
  - Dizziness [Not Recovered/Not Resolved]
